FAERS Safety Report 25874279 (Version 1)
Quarter: 2025Q4

REPORT INFORMATION
  Report Type: Spontaneous
  Country: RU (occurrence: RU)
  Receive Date: 20251002
  Receipt Date: 20251002
  Transmission Date: 20260117
  Serious: Yes (Life-Threatening, Other)
  Sender: PFIZER
  Company Number: RU-PFIZER INC-PV202500117216

PATIENT
  Age: 8 Year
  Sex: Male

DRUGS (4)
  1. SIROLIMUS [Suspect]
     Active Substance: SIROLIMUS
     Indication: Lymphatic malformation
     Dosage: 1.5 MG, DAILY
  2. VALPROIC ACID [Concomitant]
     Active Substance: VALPROIC ACID
     Indication: Epilepsy
     Dosage: 300 MG AT 8:00 AM AND 500 MG AT 8:00 PM
  3. LEVETIRACETAM [Concomitant]
     Active Substance: LEVETIRACETAM
     Indication: Epilepsy
     Dosage: 750 MG, 2X/DAY
  4. CLOBAZAM [Concomitant]
     Active Substance: CLOBAZAM
     Indication: Epilepsy
     Dosage: 2.5 MG, 2X/DAY

REACTIONS (2)
  - Lipoprotein (a) increased [Unknown]
  - Off label use [Unknown]
